FAERS Safety Report 9484143 (Version 1)
Quarter: 2013Q3

REPORT INFORMATION
  Report Type: Spontaneous
  Country: None (occurrence: US)
  Receive Date: 20130828
  Receipt Date: 20130828
  Transmission Date: 20140515
  Serious: Yes (Hospitalization)
  Sender: FDA-Public Use
  Company Number: US-AMGEN-KDL381876

PATIENT
  Age: 60 Year
  Sex: Female

DRUGS (2)
  1. ENBREL [Suspect]
     Indication: RHEUMATOID ARTHRITIS
     Dosage: 25 MG, 2 TIMES/WK
     Route: 058
  2. LEFLUNOMIDE [Concomitant]
     Dosage: 20 MG, QD
     Route: 048

REACTIONS (9)
  - Heart rate irregular [Recovered/Resolved]
  - Intestinal obstruction [Recovered/Resolved]
  - Intestinal fistula [Recovered/Resolved]
  - Abdominal pain [Recovered/Resolved]
  - Blood glucose abnormal [Unknown]
  - Joint swelling [Unknown]
  - Rheumatoid nodule [Not Recovered/Not Resolved]
  - Gait disturbance [Not Recovered/Not Resolved]
  - Abdominal infection [Not Recovered/Not Resolved]
